FAERS Safety Report 7118213-7 (Version None)
Quarter: 2010Q4

REPORT INFORMATION
  Report Type: 
  Country: None (occurrence: None)
  Receive Date: 20101118
  Receipt Date: 20101118
  Transmission Date: 20110411
  Serious: No
  Sender: FDA-Public Use
  Company Number: None

PATIENT
  Age: 54 Year
  Sex: Female
  Weight: 65.7716 kg

DRUGS (2)
  1. CYMBALTA [Suspect]
     Indication: BACK PAIN
     Dosage: 1 AM/PM PO
     Route: 048
     Dates: start: 20100802, end: 20100810
  2. CYMBALTA [Suspect]
     Indication: FIBROMYALGIA
     Dosage: 1 AM/PM PO
     Route: 048
     Dates: start: 20100802, end: 20100810

REACTIONS (4)
  - ACTIVITIES OF DAILY LIVING IMPAIRED [None]
  - ASTHENIA [None]
  - BEDRIDDEN [None]
  - MUSCLE SPASMS [None]
